FAERS Safety Report 8449614-2 (Version None)
Quarter: 2012Q2

REPORT INFORMATION
  Report Type: 
  Country: None (occurrence: None)
  Receive Date: 20120620
  Receipt Date: 20120612
  Transmission Date: 20120825
  Serious: Yes (Hospitalization)
  Sender: FDA-Public Use
  Company Number: FR-BIOGENIDEC-2012BI021217

PATIENT
  Age: 23 Year
  Sex: Female
  Weight: 73 kg

DRUGS (7)
  1. LOXAPINE [Concomitant]
     Dates: start: 20110113
  2. VALIUM [Concomitant]
     Dates: start: 20110113
  3. HUMALOG [Concomitant]
     Indication: DIABETES MELLITUS
     Route: 058
  4. LANTUS [Concomitant]
     Indication: DIABETES MELLITUS
     Route: 058
  5. GESTODENE AND ETHINYL ESTRADIOL [Concomitant]
     Indication: CONTRACEPTION
     Route: 048
  6. OMEPRAZOLE [Concomitant]
     Indication: ABDOMINAL PAIN UPPER
  7. TYSABRI [Suspect]
     Indication: MULTIPLE SCLEROSIS
     Route: 042
     Dates: start: 20081024

REACTIONS (1)
  - INTENTIONAL OVERDOSE [None]
